FAERS Safety Report 8352700-9 (Version None)
Quarter: 2012Q2

REPORT INFORMATION
  Report Type: 
  Country: None (occurrence: None)
  Receive Date: 20120511
  Receipt Date: 20110712
  Transmission Date: 20120825
  Serious: Yes (Hospitalization, Other)
  Sender: FDA-Public Use
  Company Number: US-BAYER-2011-034714

PATIENT
  Age: 27 Year
  Sex: Female
  Weight: 65.76 kg

DRUGS (9)
  1. ZYRTEC [Concomitant]
     Indication: SEASONAL ALLERGY
     Dosage: UNK UNK, PRN
  2. DROSPIRENONE AND ETHINYL ESTRADIOL [Suspect]
     Indication: CONTRACEPTION
     Dosage: UNK
     Dates: start: 20090501, end: 20091001
  3. DROSPIRENONE AND ETHINYL ESTRADIOL [Suspect]
     Indication: ACNE
  4. MECLIZINE [Concomitant]
     Dosage: 25 MG, TID
     Route: 048
     Dates: start: 20100224
  5. YASMIN [Suspect]
     Indication: ACNE
  6. DICYCLOMINE [Concomitant]
     Dosage: 20 MG, UNK
     Route: 048
  7. OMEPRAZOLE [Concomitant]
     Dosage: 20 MG, QD
     Route: 048
     Dates: start: 20100224
  8. IBUPROFEN [Concomitant]
     Dosage: UNK UNK, PRN
     Route: 048
  9. YASMIN [Suspect]
     Indication: CONTRACEPTION
     Dosage: UNK
     Dates: start: 20071001, end: 20080901

REACTIONS (12)
  - CHOLELITHIASIS [None]
  - CHOLECYSTITIS CHRONIC [None]
  - ABDOMINAL PAIN [None]
  - DIARRHOEA [None]
  - NAUSEA [None]
  - CHOLECYSTITIS ACUTE [None]
  - FLATULENCE [None]
  - DYSPEPSIA [None]
  - DISCOMFORT [None]
  - BILIARY COLIC [None]
  - VOMITING [None]
  - ABDOMINAL PAIN UPPER [None]
